FAERS Safety Report 11187012 (Version 2)
Quarter: 2015Q2

REPORT INFORMATION
  Report Type: Spontaneous
  Country: US (occurrence: US)
  Receive Date: 20150615
  Receipt Date: 20150626
  Transmission Date: 20150821
  Serious: Yes (Death)
  Sender: FDA-Public Use
  Company Number: US-ROCHE-1592377

PATIENT
  Age: 74 Year
  Sex: Male

DRUGS (2)
  1. TRAVATAN Z [Concomitant]
     Active Substance: TRAVOPROST
     Route: 047
  2. ERIVEDGE [Suspect]
     Active Substance: VISMODEGIB
     Indication: BASAL CELL CARCINOMA
     Route: 048
     Dates: start: 20150126, end: 20150512

REACTIONS (7)
  - Sudden cardiac death [Fatal]
  - Headache [Unknown]
  - Muscle spasms [Unknown]
  - Diarrhoea [Recovered/Resolved]
  - Alopecia [Unknown]
  - Lethargy [Unknown]
  - Weight decreased [Unknown]

NARRATIVE: CASE EVENT DATE: 20150524
